FAERS Safety Report 8140891-4 (Version None)
Quarter: 2012Q1

REPORT INFORMATION
  Report Type: 
  Country: None (occurrence: None)
  Receive Date: 20120216
  Receipt Date: 20120209
  Transmission Date: 20120608
  Serious: Yes (Hospitalization)
  Sender: FDA-Public Use
  Company Number: IL-UCBSA-041132

PATIENT
  Age: 76 Year
  Sex: Female

DRUGS (19)
  1. ENOXAPARIN SODIUM [Concomitant]
     Dates: start: 20101006
  2. ALDACTONE [Concomitant]
     Dates: start: 20101006
  3. ANGIOTENSIN RECEPTOR BLOCKER [Concomitant]
  4. HYPERTENSION AGENT [Concomitant]
  5. ASPIRIN [Concomitant]
     Dosage: UNKNOWN DOSE
     Dates: start: 20100906
  6. CADEX [Concomitant]
  7. COUMADIN [Concomitant]
     Dates: start: 20101006
  8. BONDORMIN [Concomitant]
     Dates: start: 20101006
  9. APIDRA [Suspect]
     Indication: TYPE 2 DIABETES MELLITUS
     Dosage: 14 IU
  10. CLOPIDOGREL BISULFATE [Concomitant]
     Dosage: UNKNOWN DOSE
     Dates: start: 20100906
  11. PRILOSEC [Concomitant]
     Dates: start: 20101006
  12. CALCIUM ANTAGONIST [Concomitant]
  13. VABEN [Concomitant]
     Dates: start: 20101006
  14. STATIN [Concomitant]
  15. SAXAGLIPTIN/PLACEBO [Suspect]
     Indication: TYPE 2 DIABETES MELLITUS
     Dates: start: 20100812, end: 20110310
  16. LANTUS [Suspect]
     Indication: TYPE 2 DIABETES MELLITUS
     Dosage: 21 IU
  17. ZAROXOLYN [Suspect]
     Dates: start: 20101201
  18. DIURETICS [Concomitant]
  19. PROSCAR [Concomitant]
     Dates: start: 20101006

REACTIONS (3)
  - BRONCHITIS [None]
  - HYPONATRAEMIA [None]
  - CONFUSIONAL STATE [None]
